FAERS Safety Report 5473377-6 (Version None)
Quarter: 2007Q4

REPORT INFORMATION
  Report Type: 
  Country: None (occurrence: None)
  Receive Date: 20071001
  Receipt Date: 20070927
  Transmission Date: 20080405
  Serious: Yes (Hospitalization)
  Sender: FDA-Public Use
  Company Number: VN-BRISTOL-MYERS SQUIBB COMPANY-13921655

PATIENT
  Age: 30 Year
  Sex: Female

DRUGS (1)
  1. BARACLUDE [Suspect]
     Indication: HEPATITIS B
     Route: 048
     Dates: start: 20070501, end: 20070924

REACTIONS (1)
  - ECTOPIC PREGNANCY [None]
